FAERS Safety Report 14533407 (Version 3)
Quarter: 2018Q2

REPORT INFORMATION
  Report Type: Report from Study
  Country: None (occurrence: US)
  Receive Date: 20180215
  Receipt Date: 20180501
  Transmission Date: 20180711
  Serious: Yes (Life-Threatening, Hospitalization, Other)
  Sender: FDA-Public Use
  Company Number: US-ABBVIE-18K-163-2252446-00

PATIENT
  Age: 49 Year
  Sex: Female
  Weight: 111.68 kg

DRUGS (31)
  1. HUMIRA [Suspect]
     Active Substance: ADALIMUMAB
     Indication: HIDRADENITIS
     Route: 058
     Dates: start: 2016
  2. CVS B12 [Concomitant]
     Indication: PRODUCT USED FOR UNKNOWN INDICATION
     Route: 048
     Dates: start: 20171109
  3. DICLOFENAC SODIUM. [Concomitant]
     Active Substance: DICLOFENAC SODIUM
     Indication: PRODUCT USED FOR UNKNOWN INDICATION
     Dosage: 4GM OF GEL TO AFFECTED AREA 4 TIMES DAILY. DO NOT APPLY MORE THAN 16GM DAILY TO ONE JOINT
     Dates: start: 20170513
  4. OXYBUTYNIN CHLORIDE. [Concomitant]
     Active Substance: OXYBUTYNIN CHLORIDE
     Indication: PRODUCT USED FOR UNKNOWN INDICATION
     Route: 048
     Dates: start: 20120316
  5. QUETIAPINE FUMARATE. [Concomitant]
     Active Substance: QUETIAPINE FUMARATE
     Indication: PRODUCT USED FOR UNKNOWN INDICATION
     Route: 048
     Dates: start: 20170526
  6. SUMATRIPTAN SUCCINATE. [Concomitant]
     Active Substance: SUMATRIPTAN SUCCINATE
     Indication: PRODUCT USED FOR UNKNOWN INDICATION
     Dosage: TAKE 1 TABLET AT ONSET AND 1 TABLET 2 HOURS LATER IF NEEDED
     Route: 048
     Dates: start: 20130823
  7. SYMBICORT [Concomitant]
     Active Substance: BUDESONIDE\FORMOTEROL FUMARATE DIHYDRATE
     Indication: PRODUCT USED FOR UNKNOWN INDICATION
     Dosage: 80-4.5 MCG/ACT, INHALE 2 PUFFS TWICE DAILY
     Route: 055
     Dates: start: 20140303
  8. VITAMIN B-6 [Concomitant]
     Active Substance: PYRIDOXINE
     Indication: PRODUCT USED FOR UNKNOWN INDICATION
     Dosage: 25MG
     Route: 048
     Dates: start: 20171109
  9. VITAMIN D3 [Concomitant]
     Active Substance: CHOLECALCIFEROL
     Indication: PRODUCT USED FOR UNKNOWN INDICATION
     Route: 048
     Dates: start: 20120207
  10. ARTIFICIAL TEARS [Concomitant]
     Active Substance: GLYCERIN\HYPROMELLOSES\POLYETHYLENE GLYCOL 400
     Indication: PRODUCT USED FOR UNKNOWN INDICATION
     Dosage: OPHTHALMIC SOLUTION, 1 DROP DAILY TO BOTH EYES
     Dates: start: 20131118
  11. POLYETHYLENE GLYCOL [Concomitant]
     Active Substance: POLYETHYLENE GLYCOLS
     Indication: PRODUCT USED FOR UNKNOWN INDICATION
     Dosage: MIX 1 PACKET IN 8 OUNCES OF LIQUID AND DRINK ONCE DAILY
     Route: 048
     Dates: start: 20131028
  12. AZELASTINE HCL [Concomitant]
     Active Substance: AZELASTINE HYDROCHLORIDE
     Indication: PRODUCT USED FOR UNKNOWN INDICATION
     Dosage: TWO SQUIRTS IN EACH NOSTRIL
     Route: 045
  13. MONTELUKAST SODIUM. [Concomitant]
     Active Substance: MONTELUKAST SODIUM
     Indication: PRODUCT USED FOR UNKNOWN INDICATION
     Dosage: 1 TABLET AT BEDTIME
     Route: 048
     Dates: start: 20170531
  14. OMEPRAZOLE. [Concomitant]
     Active Substance: OMEPRAZOLE
     Indication: PRODUCT USED FOR UNKNOWN INDICATION
     Dosage: 20-30 MINUTES PRIOR TO BREAKFAST
     Route: 048
     Dates: start: 20140828
  15. GABAPENTIN. [Concomitant]
     Active Substance: GABAPENTIN
     Indication: PRODUCT USED FOR UNKNOWN INDICATION
     Dosage: TAKE ONE TABLET BY MOUTH TWICE DAILY.
     Route: 048
     Dates: start: 20150805
  16. KETOCONAZOLE. [Concomitant]
     Active Substance: KETOCONAZOLE
     Indication: PRODUCT USED FOR UNKNOWN INDICATION
     Dosage: APPLY A THIN LAYER TO AFFECTED AREAS TWICE DAILY
     Dates: start: 20150428
  17. MAPAP [Concomitant]
     Active Substance: ACETAMINOPHEN
     Indication: PAIN
     Dosage: TAKE 1 TO 2 TABLETS BY MOUTH EVERY 4 TO 6 HOURS AS NEEDED FOR PAIN
     Route: 048
     Dates: start: 20170407
  18. PRAZOSIN HCL [Concomitant]
     Active Substance: PRAZOSIN HYDROCHLORIDE
     Indication: PRODUCT USED FOR UNKNOWN INDICATION
     Dosage: ONE AT NIGHT
     Route: 048
     Dates: start: 20170830
  19. PROAIR HFA [Concomitant]
     Active Substance: ALBUTEROL SULFATE
     Indication: PRODUCT USED FOR UNKNOWN INDICATION
     Dosage: 108 (90 BASE) MCG/ACT, INHALE 2 PUFFS EVERY 4-6 HOURS AS NEEDED
     Dates: start: 20100414
  20. SEROQUEL [Concomitant]
     Active Substance: QUETIAPINE FUMARATE
     Indication: PRODUCT USED FOR UNKNOWN INDICATION
  21. LORATADINE. [Concomitant]
     Active Substance: LORATADINE
     Indication: PRODUCT USED FOR UNKNOWN INDICATION
     Dosage: TAKE 1 TABLET EVERY MORNING AS NEEDED
     Route: 048
     Dates: start: 20170630
  22. QNASL [Concomitant]
     Active Substance: BECLOMETHASONE DIPROPIONATE
     Indication: PRODUCT USED FOR UNKNOWN INDICATION
     Dosage: INSTILL 2 SQUIRT ON EVERY DAY
     Route: 045
     Dates: start: 20140102
  23. VERAPAMIL HCL [Concomitant]
     Active Substance: VERAPAMIL HYDROCHLORIDE
     Indication: PRODUCT USED FOR UNKNOWN INDICATION
     Dosage: 240MG
     Route: 048
     Dates: start: 20171201
  24. HYDROXYZINE PAMOATE. [Concomitant]
     Active Substance: HYDROXYZINE PAMOATE
     Indication: PRODUCT USED FOR UNKNOWN INDICATION
     Dosage: AS NEEDED
     Route: 048
     Dates: start: 20171127
  25. HUMIRA [Suspect]
     Active Substance: ADALIMUMAB
     Route: 058
     Dates: start: 201703, end: 20180202
  26. ACETAMINOPHEN AND CODEINE [Concomitant]
     Active Substance: ACETAMINOPHEN\CODEINE PHOSPHATE
     Indication: PRODUCT USED FOR UNKNOWN INDICATION
     Dosage: 300-30 MG, TAKE 1 TO 2 TABLETS EVERY 6 HOURS AS NEEDED FOR PAIN. MAX 4 PER DAY
     Route: 048
     Dates: start: 20170713
  27. HUMIRA [Suspect]
     Active Substance: ADALIMUMAB
     Route: 058
  28. AMPICILLIN [Suspect]
     Active Substance: AMPICILLIN
     Indication: PRODUCT USED FOR UNKNOWN INDICATION
     Route: 065
  29. AMMONIUM LACTATE. [Concomitant]
     Active Substance: AMMONIUM LACTATE
     Indication: PRODUCT USED FOR UNKNOWN INDICATION
     Dosage: APPLY AND RUB IN A THIN FILM TO AFFECTED AREAS TWICE DAILY
     Dates: start: 20170517
  30. KETOCONAZOLE. [Concomitant]
     Active Substance: KETOCONAZOLE
     Dosage: APPLY TO SCALP EVERY DAY. LEAVE ON FOR 15 MINUTES AND RINSE
  31. LOVAZA [Concomitant]
     Active Substance: OMEGA-3-ACID ETHYL ESTERS
     Indication: PRODUCT USED FOR UNKNOWN INDICATION
     Route: 048
     Dates: start: 20131118

REACTIONS (49)
  - White blood cell count increased [Recovered/Resolved]
  - Vitamin D deficiency [Unknown]
  - Libido decreased [Unknown]
  - Liver function test increased [Unknown]
  - Thrombocytopenia [Unknown]
  - Loss of consciousness [Recovered/Resolved]
  - Bacterial test positive [Unknown]
  - Constipation [Unknown]
  - White blood cells urine positive [Unknown]
  - Vitamin B6 deficiency [Unknown]
  - Cardiovascular disorder [Unknown]
  - Leukocytosis [Unknown]
  - Rhinitis allergic [Unknown]
  - Iron deficiency anaemia [Unknown]
  - Body temperature increased [Recovered/Resolved]
  - Urine leukocyte esterase positive [Unknown]
  - Vitamin B12 deficiency [Unknown]
  - Metabolic syndrome [Unknown]
  - Chronic obstructive pulmonary disease [Unknown]
  - Oedema [Unknown]
  - Photosensitivity reaction [Unknown]
  - Gastrooesophageal reflux disease [Unknown]
  - Conjunctivitis allergic [Unknown]
  - Goitre [Unknown]
  - Blood creatine phosphokinase increased [Unknown]
  - Insomnia [Unknown]
  - Arthritis [Unknown]
  - Pyrexia [Unknown]
  - Bacterial infection [Unknown]
  - Actinomycosis [Unknown]
  - Blood urine present [Unknown]
  - Back pain [Unknown]
  - Serotonin syndrome [Unknown]
  - Dry skin [Unknown]
  - Restless legs syndrome [Unknown]
  - Hirsutism [Unknown]
  - Polycystic ovaries [Unknown]
  - Dysphagia [Unknown]
  - Migraine with aura [Unknown]
  - Neuralgia [Unknown]
  - Escherichia urinary tract infection [Unknown]
  - Dyslipidaemia [Unknown]
  - Lumbosacral radiculopathy [Unknown]
  - Glucose tolerance impaired [Unknown]
  - Sepsis [Unknown]
  - Anisocytosis [Unknown]
  - Acne [Unknown]
  - Urinary retention [Unknown]
  - Carpal tunnel syndrome [Unknown]

NARRATIVE: CASE EVENT DATE: 20180122
